FAERS Safety Report 24967961 (Version 2)
Quarter: 2025Q1

REPORT INFORMATION
  Report Type: Report from Study
  Country: US (occurrence: US)
  Receive Date: 20250214
  Receipt Date: 20250326
  Transmission Date: 20250408
  Serious: Yes (Other)
  Sender: TAKEDA
  Company Number: US-TAKEDA-2024TUS118448

PATIENT
  Sex: Female

DRUGS (4)
  1. MARIBAVIR [Suspect]
     Active Substance: MARIBAVIR
     Indication: Cytomegalovirus infection
     Dosage: 400 MILLIGRAM, BID
     Dates: start: 20241122
  2. MARIBAVIR [Suspect]
     Active Substance: MARIBAVIR
     Dosage: 800 MILLIGRAM, QD
     Dates: end: 20250107
  3. MARIBAVIR [Suspect]
     Active Substance: MARIBAVIR
     Dates: start: 20241130, end: 20250120
  4. MARIBAVIR [Suspect]
     Active Substance: MARIBAVIR
     Dosage: 400 MILLIGRAM, BID
     Dates: end: 20250226

REACTIONS (4)
  - Leukopenia [Unknown]
  - Oral herpes [Unknown]
  - Cytomegalovirus infection [Recovered/Resolved]
  - Enzyme level increased [Unknown]
